FAERS Safety Report 6733610-7 (Version None)
Quarter: 2010Q2

REPORT INFORMATION
  Report Type: 
  Country: None (occurrence: None)
  Receive Date: 20100520
  Receipt Date: 20100517
  Transmission Date: 20101027
  Serious: Yes (Hospitalization, Other)
  Sender: FDA-Public Use
  Company Number: US-ASTRAZENECA-2007UW16429

PATIENT
  Age: 541 Month
  Sex: Female
  Weight: 74.4 kg

DRUGS (25)
  1. SEROQUEL [Suspect]
     Indication: SLEEP DISORDER
     Route: 048
     Dates: start: 19970101
  2. SEROQUEL [Suspect]
     Route: 048
     Dates: start: 20041104
  3. SEROQUEL [Suspect]
     Route: 048
     Dates: start: 20070808
  4. PREDNISONE [Concomitant]
     Dates: start: 19850101, end: 20030301
  5. ZOLOFT [Concomitant]
     Route: 048
  6. XANAX [Concomitant]
     Route: 048
  7. PERCOCET [Concomitant]
     Dosage: 5/325 MG ONE TABLET BID
     Route: 048
  8. METHADONE [Concomitant]
  9. D4T [Concomitant]
  10. LAMIVUDINE (EPIVIR HBV) [Concomitant]
  11. VIRACEPT [Concomitant]
     Route: 048
     Dates: start: 19991001, end: 20000428
  12. EPIVIR [Concomitant]
     Route: 048
  13. ZERIT [Concomitant]
     Route: 048
  14. NEVIRAPINE [Concomitant]
     Dates: start: 20000401, end: 20000609
  15. ABACAVIR [Concomitant]
  16. MOTRIN [Concomitant]
  17. TORADOL [Concomitant]
  18. CHLORAL HYDRATE [Concomitant]
     Dates: start: 20020101
  19. WELLBUTRIN [Concomitant]
  20. DOXEPIN HYDROCHLORIDE [Concomitant]
  21. CELEXA [Concomitant]
  22. FUROSEMIDE [Concomitant]
  23. DEPAKOTE [Concomitant]
  24. GLYBURIDE [Concomitant]
  25. STRATTERA [Concomitant]

REACTIONS (10)
  - CHEST PAIN [None]
  - CONFUSIONAL STATE [None]
  - DIABETES MELLITUS [None]
  - DIZZINESS [None]
  - DRY MOUTH [None]
  - HEADACHE [None]
  - NEUROPATHY PERIPHERAL [None]
  - THROMBOCYTOPENIA [None]
  - TREMOR [None]
  - WEIGHT INCREASED [None]
